FAERS Safety Report 9485290 (Version 3)
Quarter: 2013Q4

REPORT INFORMATION
  Report Type: Spontaneous
  Country: GB (occurrence: GB)
  Receive Date: 20130828
  Receipt Date: 20131002
  Transmission Date: 20140711
  Serious: Yes (Hospitalization, Disabling)
  Sender: FDA-Public Use
  Company Number: GB-PFIZER INC-2013243613

PATIENT
  Age: 84 Year
  Sex: Male
  Weight: 50 kg

DRUGS (14)
  1. ATORVASTATIN [Suspect]
     Indication: HYPERTENSION
     Dosage: UNK
     Dates: start: 20130418, end: 20130610
  2. BISOPROLOL [Concomitant]
     Indication: ESSENTIAL HYPERTENSION
     Dosage: 1.25 MG, 1X/DAY
     Route: 048
  3. SALBUTAMOL [Concomitant]
     Indication: CHRONIC OBSTRUCTIVE PULMONARY DISEASE
     Dosage: 100 UG, 4X/DAY
     Route: 055
  4. SPIRONOLACTONE [Concomitant]
     Dosage: 50 MG, 1X/DAY
     Route: 048
  5. ASPIRIN [Concomitant]
     Dosage: 75 MG, 1X/DAY
     Route: 048
  6. CLOPIDOGREL [Concomitant]
     Dosage: 75 MG, 1X/DAY
     Route: 048
  7. SERETIDE [Concomitant]
     Dosage: 1 DF, 2X/DAY
     Route: 055
  8. CARBOCISTEINE [Concomitant]
     Dosage: 750 MG, 3X/DAY
     Route: 048
  9. SENNA [Concomitant]
     Indication: CONSTIPATION
     Dosage: 7.5 MG, 2X/DAY
  10. DERMOL 500 LOTION [Concomitant]
     Dosage: APPLY TO LEGS. ONE TOPICAL APPLICATION EVERY DAY IN THE MORNING
     Route: 061
  11. FORTISIP [Concomitant]
     Dosage: 1 DF, 2X/DAY
     Route: 048
  12. MOVICOL [Concomitant]
     Indication: CONSTIPATION
     Dosage: WHEN NEEDED FOR CONSTIPATION. MAX ONE SACHET TWICE A DAY.
  13. GLYCERYL TRINITRATE [Concomitant]
     Indication: CHEST PAIN
     Dosage: 400 UG, AS NEEDED
     Route: 060
  14. MUPIROCIN [Concomitant]
     Dosage: APPLY TWICE A DAY TO LEGS

REACTIONS (12)
  - Renal failure acute [Recovering/Resolving]
  - Back pain [Recovering/Resolving]
  - Circulatory collapse [Recovering/Resolving]
  - Rhabdomyolysis [Unknown]
  - Oedema peripheral [Unknown]
  - Blister [Unknown]
  - Renal failure chronic [Unknown]
  - Anaemia [Unknown]
  - Condition aggravated [Unknown]
  - Pruritus [Unknown]
  - Skin erosion [Unknown]
  - Chronic obstructive pulmonary disease [Unknown]
